FAERS Safety Report 5409373-4 (Version None)
Quarter: 2007Q3

REPORT INFORMATION
  Report Type: 
  Country: None (occurrence: None)
  Receive Date: 20070807
  Receipt Date: 20070807
  Transmission Date: 20080115
  Serious: Yes (Other)
  Sender: FDA-Public Use
  Company Number: None

PATIENT
  Sex: Male
  Weight: 78.0187 kg

DRUGS (8)
  1. REVLIMID [Suspect]
     Indication: MULTIPLE MYELOMA
     Dosage: 5MG DAILY PO
     Route: 048
  2. VICODIN [Concomitant]
  3. GABAPENTIN [Concomitant]
  4. FELODIPINE [Concomitant]
  5. LISINOPRIL [Concomitant]
  6. FUROSEMIDE [Concomitant]
  7. IPRATROPIUM BROMIDE [Concomitant]
  8. COMBIVENT [Concomitant]

REACTIONS (1)
  - LEUKOPENIA [None]
